FAERS Safety Report 15651895 (Version 1)
Quarter: 2018Q4

REPORT INFORMATION
  Report Type: Spontaneous
  Country: JP (occurrence: JP)
  Receive Date: 20181123
  Receipt Date: 20181123
  Transmission Date: 20190205
  Serious: Yes (Other)
  Sender: FDA-Public Use
  Company Number: JP-ASTRAZENECA-2018SF53107

PATIENT
  Age: 60 Year

DRUGS (8)
  1. FORXIGA [Suspect]
     Active Substance: DAPAGLIFLOZIN
     Indication: TYPE 2 DIABETES MELLITUS
     Route: 048
  2. EQUMET [Suspect]
     Active Substance: METFORMIN HYDROCHLORIDE\VILDAGLIPTIN
     Route: 048
  3. REZALTAS [Suspect]
     Active Substance: AZELNIDIPINE\OLMESARTAN MEDOXOMIL
     Route: 048
  4. ALLOPURINOL. [Suspect]
     Active Substance: ALLOPURINOL
     Route: 048
  5. CARDENALIN [Suspect]
     Active Substance: DOXAZOSIN MESYLATE
     Route: 048
  6. TAKEPRON [Suspect]
     Active Substance: LANSOPRAZOLE
     Route: 048
  7. AMARYL [Suspect]
     Active Substance: GLIMEPIRIDE
     Route: 048
  8. GLACTIV [Suspect]
     Active Substance: SITAGLIPTIN
     Route: 048

REACTIONS (2)
  - Sneezing [Unknown]
  - Rib fracture [Unknown]

NARRATIVE: CASE EVENT DATE: 20181114
